FAERS Safety Report 15427514 (Version 3)
Quarter: 2019Q2

REPORT INFORMATION
  Report Type: Spontaneous
  Country: DE (occurrence: DE)
  Receive Date: 20180925
  Receipt Date: 20190502
  Transmission Date: 20190711
  Serious: Yes (Life-Threatening, Hospitalization)
  Sender: FDA-Public Use
  Company Number: PHHY2018DE107371

PATIENT
  Sex: Female
  Weight: 78 kg

DRUGS (51)
  1. LYRICA [Concomitant]
     Active Substance: PREGABALIN
     Indication: PRODUCT USED FOR UNKNOWN INDICATION
     Dosage: UNK (150 MG STRENGTH)
     Route: 065
     Dates: start: 20140129
  2. LYRICA [Concomitant]
     Active Substance: PREGABALIN
     Dosage: UNK (150MG STRENGTH)
     Route: 065
     Dates: start: 20140819
  3. ALVALIN [Concomitant]
     Indication: PRODUCT USED FOR UNKNOWN INDICATION
     Dosage: UNK
     Route: 065
     Dates: start: 20140129
  4. VALDOXAN [Concomitant]
     Active Substance: AGOMELATINE
     Indication: PRODUCT USED FOR UNKNOWN INDICATION
     Dosage: UNK
     Route: 065
     Dates: start: 20140206
  5. ESOMEPRAZOL TAD [Concomitant]
     Active Substance: ESOMEPRAZOLE MAGNESIUM
     Dosage: UNK
     Route: 065
     Dates: start: 20141215
  6. VALSARTAN DURA [Concomitant]
     Active Substance: VALSARTAN
     Dosage: UNK  (40MG)
     Route: 065
     Dates: start: 20140709
  7. BERODUAL N [Concomitant]
     Active Substance: FENOTEROL HYDROBROMIDE\IPRATROPIUM BROMIDE
     Indication: PRODUCT USED FOR UNKNOWN INDICATION
     Dosage: UNK ML, UNK
     Route: 065
     Dates: start: 20140527
  8. VALSACOR [Concomitant]
     Active Substance: VALSARTAN
     Indication: PRODUCT USED FOR UNKNOWN INDICATION
     Dosage: UNK (80/125MG)
     Route: 065
     Dates: start: 20141017
  9. MCP [Concomitant]
     Active Substance: METOCLOPRAMIDE HYDROCHLORIDE
     Indication: PRODUCT USED FOR UNKNOWN INDICATION
     Dosage: UNK
     Route: 065
     Dates: start: 20141017
  10. LYRICA [Concomitant]
     Active Substance: PREGABALIN
     Dosage: UNK (150MG)
     Route: 065
     Dates: start: 20141114
  11. PROMETHAZINE [Concomitant]
     Active Substance: PROMETHAZINE\PROMETHAZINE HYDROCHLORIDE
     Dosage: UNK
     Route: 065
     Dates: start: 20140708
  12. INUVAIR [Concomitant]
     Active Substance: BECLOMETHASONE DIPROPIONATE\FORMOTEROL FUMARATE
     Dosage: UNK (100/6UG)
     Route: 065
     Dates: start: 20140429
  13. INUVAIR [Concomitant]
     Active Substance: BECLOMETHASONE DIPROPIONATE\FORMOTEROL FUMARATE
     Dosage: UNK (100/6UG)
     Route: 065
     Dates: start: 20140627
  14. INUVAIR [Concomitant]
     Active Substance: BECLOMETHASONE DIPROPIONATE\FORMOTEROL FUMARATE
     Dosage: UNK (100/6UG)
     Route: 065
     Dates: start: 20140715
  15. VALSARTAN DURA [Concomitant]
     Active Substance: VALSARTAN
     Indication: PRODUCT USED FOR UNKNOWN INDICATION
     Dosage: UNK (40MG)
     Route: 065
     Dates: start: 20140429
  16. VALSARTAN DURA [Concomitant]
     Active Substance: VALSARTAN
     Dosage: UNK  (40MG)
     Route: 065
     Dates: start: 20140616
  17. VALSARTAN DURA [Concomitant]
     Active Substance: VALSARTAN
     Dosage: UNK (80MG)
     Route: 065
     Dates: start: 20141120
  18. VALSACOR [Concomitant]
     Active Substance: VALSARTAN
     Dosage: UNK (80/125MG)
     Route: 065
     Dates: start: 20141215
  19. VALSARTAN/HCT ACTAVIS [Suspect]
     Active Substance: HYDROCHLOROTHIAZIDE\VALSARTAN
     Indication: PRODUCT USED FOR UNKNOWN INDICATION
     Dosage: UNK MG, UNK
     Route: 065
     Dates: start: 20140617
  20. INUVAIR [Concomitant]
     Active Substance: BECLOMETHASONE DIPROPIONATE\FORMOTEROL FUMARATE
     Indication: PRODUCT USED FOR UNKNOWN INDICATION
     Dosage: UNK (100/6UG)
     Route: 065
     Dates: start: 20140206
  21. CIATYL-Z [Concomitant]
     Active Substance: ZUCLOPENTHIXOL
     Indication: PRODUCT USED FOR UNKNOWN INDICATION
     Dosage: UNK
     Route: 065
     Dates: start: 20140226
  22. VALSARTAN ACTAVIS [Concomitant]
     Active Substance: VALSARTAN
     Indication: PRODUCT USED FOR UNKNOWN INDICATION
     Dosage: UNK
     Route: 065
     Dates: start: 20140617
  23. VALSARTAN 1 A PHARMA [Suspect]
     Active Substance: VALSARTAN
     Indication: HYPERTENSION
     Dosage: 80 MG, BID
     Route: 048
     Dates: start: 20140916, end: 20150108
  24. OPIPRAMOL-NEURAXPHARM [Concomitant]
     Active Substance: OPIPRAMOL
     Indication: PRODUCT USED FOR UNKNOWN INDICATION
     Dosage: UNK
     Route: 065
     Dates: start: 20140129
  25. LYRICA [Concomitant]
     Active Substance: PREGABALIN
     Dosage: UNK (150MG STRENGTH)
     Route: 065
     Dates: start: 20140513
  26. LYRICA [Concomitant]
     Active Substance: PREGABALIN
     Dosage: UNK (150MG STRENGTH)
     Route: 065
     Dates: start: 20140708
  27. ALVALIN [Concomitant]
     Dosage: UNK
     Route: 065
     Dates: start: 20140311
  28. NOVAMINSULFON [Concomitant]
     Active Substance: METAMIZOLE
     Indication: PRODUCT USED FOR UNKNOWN INDICATION
     Dosage: UNK
     Route: 065
     Dates: start: 20140403
  29. ESOMEPRAZOL TAD [Concomitant]
     Active Substance: ESOMEPRAZOLE MAGNESIUM
     Dosage: UNK
     Route: 065
     Dates: start: 20140617
  30. ESOMEPRAZOL TAD [Concomitant]
     Active Substance: ESOMEPRAZOLE MAGNESIUM
     Dosage: UNK
     Route: 065
     Dates: start: 20140916
  31. SERTRALIN BASICS [Concomitant]
     Dosage: UNK (100 MG)
     Route: 065
     Dates: start: 20140709
  32. ALPRAZOLAM. [Concomitant]
     Active Substance: ALPRAZOLAM
     Indication: PRODUCT USED FOR UNKNOWN INDICATION
     Dosage: UNK
     Route: 065
     Dates: start: 20140627
  33. IBUFLAM [IBUPROFEN] [Concomitant]
     Active Substance: IBUPROFEN
     Indication: PRODUCT USED FOR UNKNOWN INDICATION
     Dosage: UNK
     Route: 065
  34. LYRICA [Concomitant]
     Active Substance: PREGABALIN
     Dosage: UNK (300MG STRENGTH)
     Route: 065
     Dates: start: 20140206
  35. LYRICA [Concomitant]
     Active Substance: PREGABALIN
     Dosage: UNK (150MG STRENGTH)
     Route: 065
     Dates: start: 20140929
  36. INUVAIR [Concomitant]
     Active Substance: BECLOMETHASONE DIPROPIONATE\FORMOTEROL FUMARATE
     Dosage: UNK (100/6UG)
     Route: 065
     Dates: start: 20141105
  37. LYRICA [Concomitant]
     Active Substance: PREGABALIN
     Dosage: UNK (150MG STRENGTH)
     Route: 065
     Dates: start: 20140320
  38. VALDOXAN [Concomitant]
     Active Substance: AGOMELATINE
     Dosage: UNK
     Route: 065
     Dates: start: 20140513
  39. PROMETHAZINE [Concomitant]
     Active Substance: PROMETHAZINE\PROMETHAZINE HYDROCHLORIDE
     Indication: PRODUCT USED FOR UNKNOWN INDICATION
     Dosage: UNK
     Route: 065
     Dates: start: 20140206
  40. ESOMEPRAZOL TAD [Concomitant]
     Active Substance: ESOMEPRAZOLE MAGNESIUM
     Indication: PRODUCT USED FOR UNKNOWN INDICATION
     Dosage: UNK
     Route: 065
     Dates: start: 20140403
  41. VALSARTAN DURA [Concomitant]
     Active Substance: VALSARTAN
     Dosage: UNK  (40MG)
     Route: 065
     Dates: start: 20140527
  42. VALSARTAN DURA [Concomitant]
     Active Substance: VALSARTAN
     Dosage: UNK  (40MG)
     Route: 065
     Dates: start: 20140929
  43. SERTRALIN BASICS [Concomitant]
     Dosage: UNK (100 MG)
     Route: 065
     Dates: start: 20140513
  44. VALSARTAN 1 A PHARMA [Suspect]
     Active Substance: VALSARTAN
     Dosage: 80 MG, UNK
     Route: 065
     Dates: start: 20150108
  45. VALSARTAN ACTAVIS [Concomitant]
     Active Substance: VALSARTAN
     Dosage: UNK
     Route: 065
     Dates: start: 20140709
  46. FINALGON [Concomitant]
     Indication: PRODUCT USED FOR UNKNOWN INDICATION
     Dosage: UNK
     Route: 065
     Dates: start: 20140129
  47. PROMETHAZINE [Concomitant]
     Active Substance: PROMETHAZINE\PROMETHAZINE HYDROCHLORIDE
     Dosage: UNK
     Route: 065
     Dates: start: 20141222
  48. SERTRALIN BASICS [Concomitant]
     Indication: PRODUCT USED FOR UNKNOWN INDICATION
     Dosage: UNK (50 MG)
     Route: 065
     Dates: start: 20140513
  49. SERTRALIN BASICS [Concomitant]
     Dosage: UNK (100 MG)
     Route: 065
     Dates: start: 20140819
  50. SERTRALIN BASICS [Concomitant]
     Dosage: UNK (100 MG)
     Route: 065
     Dates: start: 20141114
  51. ALPRAZOLAM. [Concomitant]
     Active Substance: ALPRAZOLAM
     Dosage: UNK
     Route: 065
     Dates: start: 20141114

REACTIONS (2)
  - Impaired healing [Recovered/Resolved]
  - Breast cancer [Unknown]

NARRATIVE: CASE EVENT DATE: 20170119
